FAERS Safety Report 12388874 (Version 1)
Quarter: 2016Q2

REPORT INFORMATION
  Report Type: Spontaneous
  Country: US (occurrence: US)
  Receive Date: 20160520
  Receipt Date: 20160520
  Transmission Date: 20160815
  Serious: No
  Sender: FDA-Public Use
  Company Number: US-DRREDDYS-USA/USA/15/0048626

PATIENT
  Sex: 0

DRUGS (1)
  1. QUETIAPINE FUMARATE TABLETS [Suspect]
     Active Substance: QUETIAPINE FUMARATE
     Indication: PRODUCT USED FOR UNKNOWN INDICATION
     Route: 065

REACTIONS (5)
  - Influenza like illness [Not Recovered/Not Resolved]
  - Tremor [Not Recovered/Not Resolved]
  - Dizziness [Not Recovered/Not Resolved]
  - Confusional state [Not Recovered/Not Resolved]
  - Muscle twitching [Not Recovered/Not Resolved]
